FAERS Safety Report 9097171 (Version 1)
Quarter: 2013Q1

REPORT INFORMATION
  Report Type: Spontaneous
  Country: BR (occurrence: BR)
  Receive Date: 20130212
  Receipt Date: 20130212
  Transmission Date: 20140127
  Serious: Yes (Disabling)
  Sender: FDA-Public Use
  Company Number: PHHY2013BR013414

PATIENT
  Sex: Female
  Weight: 65 kg

DRUGS (3)
  1. GILENYA [Suspect]
     Indication: MULTIPLE SCLEROSIS
     Dosage: 0.5 MG, QD
     Route: 048
     Dates: start: 20120224
  2. OMEPRAZOLE [Concomitant]
     Dosage: UNK UKN, UNK
     Dates: start: 2012
  3. HYDROCHLOROTHIAZIDE [Concomitant]
     Dosage: UNK UKN, UNK
     Dates: start: 2009

REACTIONS (2)
  - Hypoaesthesia [Not Recovered/Not Resolved]
  - Condition aggravated [Unknown]
